FAERS Safety Report 4551445-0 (Version None)
Quarter: 2005Q1

REPORT INFORMATION
  Report Type: 
  Country: None (occurrence: None)
  Receive Date: 20050103
  Receipt Date: 20041215
  Transmission Date: 20050727
  Serious: Yes (Hospitalization)
  Sender: FDA-Public Use
  Company Number: 601648

PATIENT
  Age: 10 Month
  Sex: Male

DRUGS (3)
  1. ADVATE (ANTIHEMOPHILIC FACTOR (RECOMBINANT), PLASMA/ALBUMIN FREE METHO [Suspect]
     Indication: FACTOR VIII DEFICIENCY
     Dosage: 500 IU; Q2D;
     Dates: start: 20040929
  2. ADVATE (ANTIHEMOPHILIC FACTOR (RECOMBINANT), PLASMA/ALBUMIN FREE METHO [Suspect]
  3. ADVATE (ANTIHEMOPHILIC FACTOR (RECOMBINANT), PLASMA/ALBUMIN FREE METHO [Suspect]

REACTIONS (1)
  - FACTOR VIII INHIBITION [None]
